FAERS Safety Report 24785533 (Version 1)
Quarter: 2024Q4

REPORT INFORMATION
  Report Type: Spontaneous
  Country: CN (occurrence: CN)
  Receive Date: 20241228
  Receipt Date: 20241228
  Transmission Date: 20250114
  Serious: Yes (Hospitalization)
  Sender: ALEXION PHARMACEUTICALS
  Company Number: CN-ASTRAZENECA-202412CHN022440CN

PATIENT
  Age: 34 Year
  Weight: 65 kg

DRUGS (8)
  1. PULMICORT RESPULES [Suspect]
     Active Substance: BUDESONIDE
     Indication: Cough
     Dosage: 2 MILLIGRAM, QD
  2. PULMICORT RESPULES [Suspect]
     Active Substance: BUDESONIDE
     Dosage: 2 MILLIGRAM, QD
  3. PULMICORT RESPULES [Suspect]
     Active Substance: BUDESONIDE
     Dosage: 2 MILLIGRAM, QD
  4. PULMICORT RESPULES [Suspect]
     Active Substance: BUDESONIDE
     Dosage: 2 MILLIGRAM, QD
  5. ACETYLCYSTEINE [Suspect]
     Active Substance: ACETYLCYSTEINE
     Indication: Cough
     Dosage: 3 MILLIGRAM, QD
  6. ACETYLCYSTEINE [Suspect]
     Active Substance: ACETYLCYSTEINE
     Dosage: 3 MILLIGRAM, QD
  7. DEXAMETHASONE SODIUM PHOSPHATE [Suspect]
     Active Substance: DEXAMETHASONE SODIUM PHOSPHATE
     Indication: Antifungal treatment
     Dosage: 10 MILLIGRAM, QD
     Route: 042
  8. DEXAMETHASONE SODIUM PHOSPHATE [Suspect]
     Active Substance: DEXAMETHASONE SODIUM PHOSPHATE
     Dosage: 10 MILLIGRAM, QD

REACTIONS (4)
  - Dizziness [Not Recovered/Not Resolved]
  - Nausea [Not Recovered/Not Resolved]
  - Abdominal pain [Not Recovered/Not Resolved]
  - Muscular weakness [Not Recovered/Not Resolved]
